FAERS Safety Report 23193630 (Version 1)
Quarter: 2023Q4

REPORT INFORMATION
  Report Type: Spontaneous
  Country: US (occurrence: US)
  Receive Date: 20231116
  Receipt Date: 20231116
  Transmission Date: 20240109
  Serious: No
  Sender: FDA-Public Use
  Company Number: US-Teikoku Pharma USA-TPU2023-00568

PATIENT
  Sex: Female
  Weight: 74.91 kg

DRUGS (5)
  1. LIDODERM [Suspect]
     Active Substance: LIDOCAINE
     Indication: Back pain
     Route: 061
  2. LIDODERM [Suspect]
     Active Substance: LIDOCAINE
     Indication: Myalgia
     Dates: start: 202306
  3. LIDODERM [Suspect]
     Active Substance: LIDOCAINE
     Indication: Bone pain
  4. LIDOCAINE [Concomitant]
     Active Substance: LIDOCAINE
  5. LIDOCAINE [Concomitant]
     Active Substance: LIDOCAINE

REACTIONS (1)
  - Drug ineffective for unapproved indication [Unknown]
